FAERS Safety Report 23992219 (Version 1)
Quarter: 2024Q2

REPORT INFORMATION
  Report Type: Report from Study
  Country: CA (occurrence: CA)
  Receive Date: 20240620
  Receipt Date: 20240620
  Transmission Date: 20240716
  Serious: Yes (Other)
  Sender: FDA-Public Use
  Company Number: CA-ABBVIE-5800983

PATIENT
  Age: 55 Year
  Sex: Female

DRUGS (1)
  1. SKYRIZI [Suspect]
     Active Substance: RISANKIZUMAB-RZAA
     Indication: Crohn^s disease
     Route: 058
     Dates: start: 20230825

REACTIONS (4)
  - Colostomy [Unknown]
  - Crohn^s disease [Unknown]
  - Rheumatoid arthritis [Unknown]
  - Fistula [Unknown]

NARRATIVE: CASE EVENT DATE: 20240101
